FAERS Safety Report 20322149 (Version 2)
Quarter: 2022Q1

REPORT INFORMATION
  Report Type: Spontaneous
  Country: NL (occurrence: NL)
  Receive Date: 20220111
  Receipt Date: 20220329
  Transmission Date: 20220423
  Serious: Yes (Death)
  Sender: FDA-Public Use
  Company Number: NL-ALEMBIC-2021SCAL000580

PATIENT

DRUGS (10)
  1. VENLAFAXINE [Interacting]
     Active Substance: VENLAFAXINE HYDROCHLORIDE
     Indication: Sleep disorder
     Dosage: 1 MILLIGRAM
  2. VENLAFAXINE [Interacting]
     Active Substance: VENLAFAXINE HYDROCHLORIDE
     Indication: Stress
     Dosage: 37.5 MILLIGRAM, QD
  3. VENLAFAXINE [Interacting]
     Active Substance: VENLAFAXINE HYDROCHLORIDE
     Dosage: UNK
  4. OXAZEPAM [Interacting]
     Active Substance: OXAZEPAM
     Indication: Stress
     Dosage: 1 MILLIGRAM
  5. OXAZEPAM [Interacting]
     Active Substance: OXAZEPAM
     Indication: Sleep disorder
     Dosage: UNK
  6. ZOPICLONE [Interacting]
     Active Substance: ZOPICLONE
     Indication: Sleep disorder
     Dosage: 1 MILLIGRAM
  7. ZOPICLONE [Interacting]
     Active Substance: ZOPICLONE
     Indication: Stress
     Dosage: UNK
  8. TEMAZEPAM [Interacting]
     Active Substance: TEMAZEPAM
     Indication: Sleep disorder
     Dosage: 1 MILLIGRAM
  9. TEMAZEPAM [Interacting]
     Active Substance: TEMAZEPAM
     Indication: Stress
     Dosage: 10 MILLIGRAM, QD
  10. TEMAZEPAM [Interacting]
     Active Substance: TEMAZEPAM
     Dosage: UNK

REACTIONS (5)
  - Completed suicide [Fatal]
  - Drug withdrawal syndrome [Fatal]
  - Product dose omission issue [Fatal]
  - Drug interaction [Fatal]
  - Organic brain syndrome [Fatal]
